FAERS Safety Report 4480364-3 (Version None)
Quarter: 2004Q4

REPORT INFORMATION
  Report Type: 
  Country: None (occurrence: None)
  Receive Date: 20041018
  Receipt Date: 20040924
  Transmission Date: 20050328
  Serious: Yes (Hospitalization)
  Sender: FDA-Public Use
  Company Number: 8952

PATIENT
  Age: 56 Year
  Sex: Female

DRUGS (3)
  1. METHOTREXATE [Suspect]
     Indication: RHEUMATOID ARTHRITIS
     Dosage: PO
     Route: 048
     Dates: end: 20010901
  2. CYCLOPHOSPHAMIDE [Suspect]
     Indication: RHEUMATOID ARTHRITIS
     Dosage: PO
     Route: 048
     Dates: end: 20010901
  3. BETAMETHASONE [Concomitant]

REACTIONS (7)
  - AURICULAR SWELLING [None]
  - DEPRESSED LEVEL OF CONSCIOUSNESS [None]
  - HERPES ZOSTER [None]
  - LYMPHOCYTE COUNT DECREASED [None]
  - PAIN [None]
  - SKIN ULCER [None]
  - THERAPY NON-RESPONDER [None]
